FAERS Safety Report 6674773-1 (Version None)
Quarter: 2010Q1

REPORT INFORMATION
  Report Type: 
  Country: None (occurrence: None)
  Receive Date: 20100331
  Receipt Date: 20090430
  Transmission Date: 20100710
  Serious: Yes (Other)
  Sender: FDA-Public Use
  Company Number: 2009206926

PATIENT
  Sex: Male

DRUGS (4)
  1. CADUET [Suspect]
     Indication: BLOOD CHOLESTEROL INCREASED
     Dosage: 5/80MG UNIT DOSE
     Dates: start: 20081201, end: 20090401
  2. CADUET [Suspect]
     Indication: HYPERTENSION
     Dosage: 5/80MG UNIT DOSE
     Dates: start: 20081201, end: 20090401
  3. MICARDIS [Concomitant]
  4. LUPRON [Concomitant]

REACTIONS (3)
  - FATIGUE [None]
  - OEDEMA PERIPHERAL [None]
  - WEIGHT INCREASED [None]
